FAERS Safety Report 23465074 (Version 2)
Quarter: 2024Q1

REPORT INFORMATION
  Report Type: Report from Study
  Country: US (occurrence: US)
  Receive Date: 20240201
  Receipt Date: 20240304
  Transmission Date: 20240410
  Serious: Yes (Hospitalization)
  Sender: FDA-Public Use
  Company Number: US-BAUSCH-BL-2024-001566

PATIENT
  Age: 53 Year
  Sex: Male

DRUGS (2)
  1. XIFAXAN [Suspect]
     Active Substance: RIFAXIMIN
     Indication: Hepatic encephalopathy
     Dosage: DURATION AT THE TIME OF INITIAL REPORT: 18 MONTHS
     Route: 048
     Dates: start: 202207
  2. LACTULOSE [Concomitant]
     Active Substance: LACTULOSE
     Indication: Product used for unknown indication

REACTIONS (4)
  - Fluid retention [Unknown]
  - Ammonia increased [Unknown]
  - Liver transplant [Unknown]
  - Liver disorder [Unknown]

NARRATIVE: CASE EVENT DATE: 20240126
